FAERS Safety Report 8094043-7 (Version None)
Quarter: 2012Q1

REPORT INFORMATION
  Report Type: 
  Country: None (occurrence: None)
  Receive Date: 20120126
  Receipt Date: 20120119
  Transmission Date: 20120608
  Serious: Yes (Hospitalization)
  Sender: FDA-Public Use
  Company Number: 2012MA001024

PATIENT
  Sex: Male

DRUGS (2)
  1. IRINOTECAN HYDROCHLORIDE [Suspect]
  2. PANTOPRAZOLE SODIUM [Suspect]

REACTIONS (3)
  - LEUKOPENIA [None]
  - DIARRHOEA [None]
  - ERYTHROPENIA [None]
